FAERS Safety Report 4719363-2 (Version None)
Quarter: 2005Q3

REPORT INFORMATION
  Report Type: 
  Country: None (occurrence: None)
  Receive Date: 20050721
  Receipt Date: 20050711
  Transmission Date: 20060218
  Serious: Yes (Other)
  Sender: FDA-Public Use
  Company Number: NO-JNJFOC-20050702079

PATIENT
  Age: 57 Year
  Sex: Female

DRUGS (6)
  1. INFLIXIMAB [Suspect]
     Indication: RHEUMATOID ARTHRITIS
     Route: 042
  2. METHOTREXATE [Concomitant]
     Indication: RHEUMATOID ARTHRITIS
     Route: 065
  3. BEXTRA [Concomitant]
     Indication: RHEUMATOID ARTHRITIS
     Route: 065
  4. FOLIC ACID [Concomitant]
     Route: 065
  5. LISINOPRIL [Concomitant]
     Indication: MIGRAINE
     Route: 065
  6. ZOCOR [Concomitant]
     Route: 065

REACTIONS (2)
  - DEMYELINATION [None]
  - TREMOR [None]
